FAERS Safety Report 12333319 (Version 1)
Quarter: 2016Q2

REPORT INFORMATION
  Report Type: Spontaneous
  Country: BR (occurrence: BR)
  Receive Date: 20160504
  Receipt Date: 20160504
  Transmission Date: 20160815
  Serious: Yes (Death, Hospitalization, Other)
  Sender: FDA-Public Use
  Company Number: BR-JNJFOC-20160424715

PATIENT
  Age: 90 Year
  Sex: Male

DRUGS (3)
  1. XARELTO [Suspect]
     Active Substance: RIVAROXABAN
     Indication: CARDIAC DISORDER
     Route: 048
     Dates: start: 201508, end: 20151114
  2. LASIX [Concomitant]
     Active Substance: FUROSEMIDE
     Indication: DIURETIC THERAPY
     Route: 065
  3. XARELTO [Suspect]
     Active Substance: RIVAROXABAN
     Indication: CEREBROVASCULAR ACCIDENT PROPHYLAXIS
     Route: 048
     Dates: start: 201508, end: 20151114

REACTIONS (7)
  - Product use issue [Unknown]
  - Cardio-respiratory arrest [Fatal]
  - Electrolyte imbalance [Fatal]
  - Lower gastrointestinal haemorrhage [Fatal]
  - Haemorrhage [Recovered/Resolved]
  - Internal haemorrhage [Fatal]
  - Pallor [Recovered/Resolved]

NARRATIVE: CASE EVENT DATE: 201510
